FAERS Safety Report 9897147 (Version 1)
Quarter: 2014Q1

REPORT INFORMATION
  Report Type: Spontaneous
  Country: CH (occurrence: CH)
  Receive Date: 20140214
  Receipt Date: 20140214
  Transmission Date: 20141002
  Serious: Yes (Hospitalization)
  Sender: FDA-Public Use
  Company Number: CH-009507513-1402CHE002961

PATIENT
  Age: 78 Year
  Sex: Male
  Weight: 73 kg

DRUGS (7)
  1. REMERON [Suspect]
     Indication: DEPRESSION
     Dosage: 30 MG, QD
     Route: 048
     Dates: start: 20130812, end: 20130814
  2. REMERON [Suspect]
     Dosage: 15 MG, QD
     Route: 048
     Dates: start: 20130807, end: 20130811
  3. CLEXANE (ENOXAPARIN SODIUM) [Concomitant]
     Indication: PULMONARY EMBOLISM
     Dosage: 140 MG, BID
     Route: 058
     Dates: start: 20130812, end: 20130826
  4. SINTROM [Concomitant]
     Indication: PULMONARY EMBOLISM
     Dosage: ACCORDING TO INR
     Route: 048
     Dates: start: 20130814
  5. BELOC (METOPROLOL SUCCINATE) [Concomitant]
     Indication: ESSENTIAL HYPERTENSION
     Dosage: 25MG, QD
     Route: 048
  6. NEXIUM [Concomitant]
     Indication: GASTROOESOPHAGEAL REFLUX DISEASE
     Dosage: 40 MG, QD
     Route: 048
  7. AVODART [Concomitant]
     Indication: BENIGN PROSTATIC HYPERPLASIA
     Dosage: 0.5 MG, QD
     Route: 048

REACTIONS (2)
  - Confusional state [Recovered/Resolved]
  - Serotonin syndrome [Recovered/Resolved]
